FAERS Safety Report 10953173 (Version 1)
Quarter: 2015Q1

REPORT INFORMATION
  Report Type: Report from Study
  Country: US (occurrence: None)
  Receive Date: 20150323
  Receipt Date: 20150323
  Transmission Date: 20150721
  Serious: Yes (Other)
  Sender: FDA-Public Use
  Company Number: US-001615

PATIENT
  Age: 41 Year
  Sex: Female

DRUGS (6)
  1. SOLUTIONS FOR PARENTERAL NUTRITION [Concomitant]
     Active Substance: AMINO ACIDS\DEXTROSE\ELECTROLYTES NOS
  2. BYSTOLIC [Concomitant]
     Active Substance: NEBIVOLOL HYDROCHLORIDE
  3. NORVASC [Concomitant]
     Active Substance: AMLODIPINE BESYLATE
  4. ALDACTONE [Suspect]
     Active Substance: SPIRONOLACTONE
  5. GATTEX [Suspect]
     Active Substance: TEDUGLUTIDE\WATER
     Indication: SHORT-BOWEL SYNDROME
     Route: 058
     Dates: start: 20140520
  6. FRAGMIN [Concomitant]
     Active Substance: DALTEPARIN SODIUM

REACTIONS (7)
  - Swelling [None]
  - Frequent bowel movements [None]
  - Oedema [None]
  - Hypertension [None]
  - Peripheral swelling [None]
  - Weight decreased [None]
  - Malaise [None]

NARRATIVE: CASE EVENT DATE: 201412
